FAERS Safety Report 8986065 (Version 3)
Quarter: 2013Q1

REPORT INFORMATION
  Report Type: Spontaneous
  Country: US (occurrence: US)
  Receive Date: 20121218
  Receipt Date: 20130103
  Transmission Date: 20140127
  Serious: Yes (Other)
  Sender: FDA-Public Use
  Company Number: 2012SP004633

PATIENT
  Age: 61 Year
  Sex: Female

DRUGS (7)
  1. FLUOROURACIL [Suspect]
     Indication: COLORECTAL CANCER
     Route: 042
  2. IRINOTECAN HYDROCHLORIDE [Suspect]
     Indication: COLORECTAL CANCER
     Route: 042
     Dates: start: 20120816, end: 20121025
  3. AFLIBERCEPT [Suspect]
     Indication: COLORECTAL CANCER
     Route: 042
     Dates: start: 20120908, end: 20121026
  4. ONDANSETRON HYDROCHLORIDE [Concomitant]
     Indication: GASTROOESOPHAGEAL REFLUX DISEASE
     Dates: start: 20120816, end: 20121026
  5. COLACE [Concomitant]
     Indication: DIARRHOEA
     Dates: start: 20121026
  6. OMEPRAZOLE [Concomitant]
     Dates: start: 20121026
  7. LEUCOVORINA [Concomitant]

REACTIONS (1)
  - Hypertensive crisis [Recovered/Resolved]
